FAERS Safety Report 13536020 (Version 1)
Quarter: 2017Q2

REPORT INFORMATION
  Report Type: Spontaneous
  Country: US (occurrence: US)
  Receive Date: 20170511
  Receipt Date: 20170511
  Transmission Date: 20170830
  Serious: Yes (Hospitalization)
  Sender: FDA-Public Use
  Company Number: None

PATIENT
  Age: 71 Year
  Sex: Female
  Weight: 49 kg

DRUGS (1)
  1. NIVOLUMAB [Suspect]
     Active Substance: NIVOLUMAB
     Dosage: OTHER FREQUENCY:Q2 WEEKS; INTRAVENOUS (NOT OTHERWISE SPECIFIED) ?
     Route: 042
     Dates: start: 20170428, end: 20170504

REACTIONS (3)
  - Transaminases increased [None]
  - Abdominal pain [None]
  - Hyperbilirubinaemia [None]

NARRATIVE: CASE EVENT DATE: 20170504
